FAERS Safety Report 18041441 (Version 1)
Quarter: 2020Q3

REPORT INFORMATION
  Report Type: Report from Study
  Country: CA (occurrence: CA)
  Receive Date: 20200719
  Receipt Date: 20200719
  Transmission Date: 20201103
  Serious: Yes (Other)
  Sender: FDA-Public Use
  Company Number: CA-BIOGEN-2014BI070063

PATIENT
  Age: 43 Year
  Sex: Female

DRUGS (1)
  1. TYSABRI [Suspect]
     Active Substance: NATALIZUMAB
     Indication: MULTIPLE SCLEROSIS
     Route: 042
     Dates: start: 20120730

REACTIONS (5)
  - Ovarian cyst [Not Recovered/Not Resolved]
  - Haematochezia [Unknown]
  - Precancerous cells present [Unknown]
  - Uterine mass [Not Recovered/Not Resolved]
  - Stool pH decreased [Unknown]

NARRATIVE: CASE EVENT DATE: 20140608
